FAERS Safety Report 10046899 (Version 2)
Quarter: 2014Q1

REPORT INFORMATION
  Report Type: Spontaneous
  Country: US (occurrence: US)
  Receive Date: 20140331
  Receipt Date: 20140331
  Transmission Date: 20141002
  Serious: Yes (Other)
  Sender: FDA-Public Use
  Company Number: US-GE HEALTHCARE MEDICAL DIAGNOSTICS-OSCN-PR-0903S-0157

PATIENT
  Age: 55 Year
  Sex: Male

DRUGS (11)
  1. OMNISCAN [Suspect]
     Indication: HEADACHE
     Route: 042
     Dates: start: 20061129, end: 20061129
  2. OMNISCAN [Suspect]
     Indication: RENAL FAILURE CHRONIC
     Dates: start: 20061227, end: 20061227
  3. MAGNEVIST [Suspect]
     Dates: start: 20060602, end: 20060602
  4. CAPTOPRIL [Concomitant]
  5. EPOGEN [Concomitant]
  6. BENAZEPRIL [Concomitant]
  7. FERRLECIT [Concomitant]
  8. LOTREL [Concomitant]
  9. PREDNISONE [Concomitant]
  10. PROGRAF [Concomitant]
  11. THYMOGLOBULIN [Concomitant]

REACTIONS (1)
  - Nephrogenic systemic fibrosis [Not Recovered/Not Resolved]
